FAERS Safety Report 7303763-0 (Version None)
Quarter: 2011Q1

REPORT INFORMATION
  Report Type: 
  Country: None (occurrence: None)
  Receive Date: 20110221
  Receipt Date: 20110209
  Transmission Date: 20110831
  Serious: Yes (Hospitalization, Other)
  Sender: FDA-Public Use
  Company Number: BR-ROCHE-758861

PATIENT
  Sex: Female
  Weight: 60 kg

DRUGS (2)
  1. ROCEPHIN [Suspect]
     Route: 042
     Dates: start: 20080101, end: 20080101
  2. ROACUTAN [Suspect]
     Dosage: 2 DOSE FORM IN THE MORNING
     Route: 048
     Dates: start: 20090101, end: 20100101

REACTIONS (5)
  - MALAISE [None]
  - PANIC DISORDER [None]
  - MUSCULAR WEAKNESS [None]
  - HYPERSENSITIVITY [None]
  - PALPITATIONS [None]
